FAERS Safety Report 6473155-5 (Version None)
Quarter: 2009Q4

REPORT INFORMATION
  Report Type: 
  Country: None (occurrence: None)
  Receive Date: 20091204
  Receipt Date: 20080529
  Transmission Date: 20100525
  Serious: Yes (Hospitalization)
  Sender: FDA-Public Use
  Company Number: US-ELI_LILLY_AND_COMPANY-US200805006219

PATIENT
  Sex: Female

DRUGS (4)
  1. FORTEO [Suspect]
     Indication: OSTEOPOROSIS
     Dates: start: 20070803, end: 20071201
  2. FORTEO [Suspect]
     Dates: start: 20071201, end: 20080101
  3. FORTEO [Suspect]
     Dates: start: 20080101, end: 20080101
  4. LASIX [Concomitant]
     Dosage: 160 MG, DAILY (1/D)

REACTIONS (4)
  - CARDIAC FAILURE [None]
  - FLUID RETENTION [None]
  - INJECTION SITE NODULE [None]
  - OESOPHAGEAL DISORDER [None]
